FAERS Safety Report 5626360-1 (Version None)
Quarter: 2008Q1

REPORT INFORMATION
  Report Type: 
  Country: None (occurrence: None)
  Receive Date: 20080213
  Receipt Date: 20080213
  Transmission Date: 20080703
  Serious: Yes (Hospitalization)
  Sender: FDA-Public Use
  Company Number: None

PATIENT
  Sex: Male
  Weight: 94.9 kg

DRUGS (8)
  1. VELCADE [Suspect]
     Indication: MULTIPLE MYELOMA
     Dosage: 1 MG/M^2  EVERY 4 DAYS  IV
     Route: 042
     Dates: start: 20080122, end: 20080201
  2. TIPIFARNIB  -ZARNESTRA-     J+J [Suspect]
     Dosage: 200 MG  BID  PO
     Route: 048
     Dates: start: 20080122, end: 20080207
  3. ACYCLOVIR [Concomitant]
  4. CLONIDINE [Concomitant]
  5. SPORANOX [Concomitant]
  6. MEPRON [Concomitant]
  7. NORVASC [Concomitant]
  8. ALLOPURINOL [Concomitant]

REACTIONS (4)
  - ABDOMINAL PAIN [None]
  - DEHYDRATION [None]
  - EPISTAXIS [None]
  - THROMBOCYTOPENIA [None]
